FAERS Safety Report 15148163 (Version 1)
Quarter: 2018Q3

REPORT INFORMATION
  Report Type: Report from Study
  Country: ES (occurrence: ES)
  Receive Date: 20180716
  Receipt Date: 20180716
  Transmission Date: 20181010
  Serious: Yes (Hospitalization)
  Sender: FDA-Public Use
  Company Number: ES-PURDUE-GBR-2018-0057366

PATIENT
  Age: 59 Year
  Sex: Female

DRUGS (21)
  1. TAPENTADOL [Suspect]
     Active Substance: TAPENTADOL
     Dosage: UNK
     Route: 065
  2. PREGABALIN. [Suspect]
     Active Substance: PREGABALIN
     Indication: ANALGESIC THERAPY
     Dosage: 75 MG, Q8H
     Route: 065
  3. LIDOCAINE. [Suspect]
     Active Substance: LIDOCAINE
     Dosage: 1 DF, Q6H
     Route: 061
  4. FENTANYL. [Suspect]
     Active Substance: FENTANYL
     Dosage: 100 MCG, PRN
     Route: 060
  5. FENTANYL. [Suspect]
     Active Substance: FENTANYL
     Dosage: 300 MCG, UNK
     Route: 060
  6. AMITRIPTYLLIN [Suspect]
     Active Substance: AMITRIPTYLINE HYDROCHLORIDE
     Indication: ANALGESIC THERAPY
     Dosage: 10 MG, PM
     Route: 065
  7. ERLOTINIB [Concomitant]
     Active Substance: ERLOTINIB
     Indication: EGFR GENE MUTATION
     Dosage: 150 MG, DAILY
     Route: 065
  8. DEXAMETHASONE. [Concomitant]
     Active Substance: DEXAMETHASONE
     Indication: PAIN
     Dosage: 4 MG, Q12H
     Route: 065
  9. FENTANYL. [Suspect]
     Active Substance: FENTANYL
     Indication: PAIN
     Dosage: 100 MCG, DAILY
     Route: 062
  10. ZOMETA [Concomitant]
     Active Substance: ZOLEDRONIC ACID
     Indication: EGFR GENE MUTATION
     Dosage: 4 MG, MONTHLY
     Route: 065
  11. OXYCODONE HYDROCHLORIDE. [Suspect]
     Active Substance: OXYCODONE HYDROCHLORIDE
     Indication: ANALGESIC THERAPY
     Dosage: 40 MG, Q12H
     Route: 065
  12. TAPENTADOL [Suspect]
     Active Substance: TAPENTADOL
     Indication: ANALGESIC THERAPY
     Dosage: 25 MG, DAILY (LUNCH TIME)
     Route: 065
  13. FENTANYL. [Suspect]
     Active Substance: FENTANYL
     Dosage: 200 MCG, UNK
     Route: 060
  14. FENTANYL. [Suspect]
     Active Substance: FENTANYL
     Dosage: 150 MCG, DAILY
     Route: 062
  15. PREGABALIN. [Suspect]
     Active Substance: PREGABALIN
     Dosage: 25 MG, PM
     Route: 065
  16. LIDOCAINE. [Suspect]
     Active Substance: LIDOCAINE
     Indication: ANALGESIC THERAPY
     Dosage: 1 DF, Q12H
     Route: 061
  17. FENTANYL. [Suspect]
     Active Substance: FENTANYL
     Dosage: 6 TABLET, NOCTE
     Route: 060
  18. OXYCODONE HYDROCHLORIDE / NALOXONE HYDROCHLORIDE [Suspect]
     Active Substance: NALOXONE HYDROCHLORIDE\OXYCODONE HYDROCHLORIDE
     Indication: ANALGESIC THERAPY
     Dosage: 1 DF, Q12H (STRENGHT 40/20)
     Route: 065
  19. FENTANYL. [Suspect]
     Active Substance: FENTANYL
     Indication: BREAKTHROUGH PAIN
     Dosage: 2 TABLET, DAILY
     Route: 060
  20. FENTANYL. [Suspect]
     Active Substance: FENTANYL
     Dosage: 400 MCG, UNK
     Route: 060
  21. FENTANYL. [Suspect]
     Active Substance: FENTANYL
     Dosage: 50 MCG, Q72H
     Route: 062

REACTIONS (8)
  - Inappropriate schedule of drug administration [Unknown]
  - Night sweats [Recovered/Resolved]
  - Malaise [Recovered/Resolved]
  - Nausea [Recovered/Resolved]
  - Rash [Unknown]
  - Insomnia [Recovered/Resolved]
  - Decreased appetite [Recovered/Resolved]
  - Pulmonary hilum mass [None]
